FAERS Safety Report 7700829-8 (Version None)
Quarter: 2011Q3

REPORT INFORMATION
  Report Type: 
  Country: None (occurrence: None)
  Receive Date: 20110822
  Receipt Date: 20110818
  Transmission Date: 20111222
  Serious: Yes (Hospitalization, Other)
  Sender: FDA-Public Use
  Company Number: US-PFIZER INC-2011132586

PATIENT
  Sex: Female

DRUGS (2)
  1. CHANTIX [Suspect]
     Indication: SMOKING CESSATION THERAPY
     Dosage: 1 MG, UNK
     Dates: start: 20070611, end: 20071003
  2. CHANTIX [Suspect]
     Dosage: 1 MG, UNK
     Dates: start: 20071205, end: 20080319

REACTIONS (7)
  - SUICIDE ATTEMPT [None]
  - MENTAL DISORDER [None]
  - ANXIETY [None]
  - INSOMNIA [None]
  - DEPRESSION [None]
  - INTENTIONAL OVERDOSE [None]
  - AMNESIA [None]
